FAERS Safety Report 6566432-0 (Version None)
Quarter: 2010Q1

REPORT INFORMATION
  Report Type: 
  Country: None (occurrence: None)
  Receive Date: 20100202
  Receipt Date: 20100121
  Transmission Date: 20100710
  Serious: Yes (Hospitalization)
  Sender: FDA-Public Use
  Company Number: PHHY2010FR03502

PATIENT
  Sex: Male

DRUGS (3)
  1. EXELON [Suspect]
     Route: 048
     Dates: start: 20060101, end: 20091101
  2. RISPERDAL [Suspect]
  3. EBIXA [Concomitant]

REACTIONS (5)
  - ABNORMAL BEHAVIOUR [None]
  - AGGRESSION [None]
  - COGNITIVE DISORDER [None]
  - GRAND MAL CONVULSION [None]
  - SLEEP DISORDER [None]
